FAERS Safety Report 24353993 (Version 2)
Quarter: 2024Q4

REPORT INFORMATION
  Report Type: Report from Study
  Country: US (occurrence: US)
  Receive Date: 20240923
  Receipt Date: 20241219
  Transmission Date: 20250114
  Serious: Yes (Other)
  Sender: ABBVIE
  Company Number: US-ABBVIE-5931148

PATIENT
  Age: 67 Year
  Sex: Female

DRUGS (1)
  1. SKYRIZI [Suspect]
     Active Substance: RISANKIZUMAB-RZAA
     Indication: Crohn^s disease
     Route: 058
     Dates: start: 20240221

REACTIONS (6)
  - Dental operation [Not Recovered/Not Resolved]
  - Procedural complication [Not Recovered/Not Resolved]
  - Food allergy [Not Recovered/Not Resolved]
  - Skin disorder [Not Recovered/Not Resolved]
  - Arthritis [Not Recovered/Not Resolved]
  - Family stress [Not Recovered/Not Resolved]

NARRATIVE: CASE EVENT DATE: 20240101
